FAERS Safety Report 24072081 (Version 1)
Quarter: 2024Q3

REPORT INFORMATION
  Report Type: Spontaneous
  Country: US (occurrence: None)
  Receive Date: 20240709
  Receipt Date: 20240709
  Transmission Date: 20241017
  Serious: Yes (Other)
  Sender: Public
  Company Number: None

PATIENT
  Age: 48 Year
  Sex: Female
  Weight: 110.2 kg

DRUGS (1)
  1. ANASTROZOLE [Suspect]
     Active Substance: ANASTROZOLE
     Indication: Invasive ductal breast carcinoma
     Dosage: FREQUENCY : DAILY;?
     Route: 048
     Dates: start: 20230712, end: 20230814

REACTIONS (2)
  - Arthralgia [None]
  - Neuralgia [None]

NARRATIVE: CASE EVENT DATE: 20230814
